FAERS Safety Report 8112704-8 (Version None)
Quarter: 2012Q1

REPORT INFORMATION
  Report Type: 
  Country: None (occurrence: None)
  Receive Date: 20120203
  Receipt Date: 20120201
  Transmission Date: 20120608
  Serious: Yes (Death, Hospitalization)
  Sender: FDA-Public Use
  Company Number: US-VERTEX PHARMACEUTICALS INC.-AE-2011-005459

PATIENT
  Sex: Female

DRUGS (8)
  1. RIBAVIRIN [Concomitant]
     Indication: HEPATITIS C
     Dates: start: 20111121, end: 20111220
  2. BYSTOLIC [Concomitant]
  3. ASPIRIN [Concomitant]
  4. PEGASYS [Concomitant]
     Indication: HEPATITIS C
     Dates: start: 20111121, end: 20111227
  5. LISINOPRIL [Concomitant]
  6. CITALOPRAM HYDROBROMIDE [Concomitant]
  7. HYDROCHLOROTHIAZIDE [Concomitant]
  8. INCIVEK [Suspect]
     Indication: HEPATITIS C
     Route: 048
     Dates: start: 20111121, end: 20111227

REACTIONS (5)
  - JAUNDICE [None]
  - RENAL FAILURE [None]
  - ENCEPHALOPATHY [None]
  - ANAEMIA [None]
  - HEPATIC FAILURE [None]
